FAERS Safety Report 9372049 (Version 2)
Quarter: 2013Q3

REPORT INFORMATION
  Report Type: Spontaneous
  Country: GB (occurrence: GB)
  Receive Date: 20130627
  Receipt Date: 20130813
  Transmission Date: 20140515
  Serious: Yes (Other)
  Sender: FDA-Public Use
  Company Number: GB-ASTRAZENECA-2013SE47982

PATIENT
  Age: 82 Year
  Sex: Male

DRUGS (5)
  1. BRILIQUE [Suspect]
     Indication: ACUTE CORONARY SYNDROME
     Route: 048
     Dates: start: 201305
  2. RANOLAZINE [Concomitant]
     Indication: ANGINA PECTORIS
     Route: 048
  3. LEVOTHYROXINE [Concomitant]
     Route: 048
  4. ASPIRIN [Concomitant]
     Route: 048
  5. PRAVASTATIN [Concomitant]
     Route: 048

REACTIONS (2)
  - Renal failure [Not Recovered/Not Resolved]
  - Blood creatinine increased [Unknown]
